FAERS Safety Report 8923684 (Version 2)
Quarter: 2012Q4

REPORT INFORMATION
  Report Type: Spontaneous
  Country: DK (occurrence: None)
  Receive Date: 20121115
  Receipt Date: 20121127
  Transmission Date: 20130627
  Serious: Yes (Hospitalization)
  Sender: FDA-Public Use
  Company Number: 2012-7672

PATIENT
  Sex: Female

DRUGS (3)
  1. AZZALURE (BOTULINUM TOXIN TYPE A) (BOTULINUM TOXIN TYPE A) [Suspect]
     Indication: CROW^S FEET
     Dates: start: 20121002, end: 20121002
  2. AZZALURE (BOTULINUM TOXIN TYPE A) (BOTULINUM TOXIN TYPE A) [Suspect]
     Indication: DRUG USE FOR UNAPPROVED INDICATION
     Dates: start: 20121002, end: 20121002
  3. RESTYLANE [Suspect]
     Indication: GLABELLAR FROWN LINES
     Dates: start: 20121005, end: 20121005

REACTIONS (7)
  - Infection [None]
  - Nodule [None]
  - Oedema [None]
  - Drug ineffective [None]
  - Injection site pain [None]
  - Pyrexia [None]
  - Sinusitis [None]
